FAERS Safety Report 7269626-4 (Version None)
Quarter: 2011Q1

REPORT INFORMATION
  Report Type: 
  Country: None (occurrence: None)
  Receive Date: 20110124
  Receipt Date: 20101227
  Transmission Date: 20110831
  Serious: Yes (Other)
  Sender: FDA-Public Use
  Company Number: US-ACCORD-007895

PATIENT
  Age: 30 Month
  Sex: Female

DRUGS (3)
  1. ETOPOSIDE [Suspect]
     Indication: RETINOBLASTOMA
     Dosage: 90.00MG/M2
  2. CARBOPLATIN [Suspect]
     Indication: RETINOBLASTOMA
     Dosage: 336.00 MG/M2;
  3. VINCRISTINE [Suspect]
     Indication: RETINOBLASTOMA
     Dosage: 0.90 MG/M2;

REACTIONS (2)
  - NO THERAPEUTIC RESPONSE [None]
  - OFF LABEL USE [None]
